FAERS Safety Report 8167259-9 (Version None)
Quarter: 2012Q1

REPORT INFORMATION
  Report Type: 
  Country: None (occurrence: None)
  Receive Date: 20120227
  Receipt Date: 20120223
  Transmission Date: 20120608
  Serious: Yes (Other)
  Sender: FDA-Public Use
  Company Number: US-PFIZER INC-2012048730

PATIENT
  Sex: Female

DRUGS (3)
  1. CHANTIX [Suspect]
     Dosage: UNK
     Route: 048
     Dates: start: 20111101, end: 20111123
  2. PROPRANOLOL [Concomitant]
     Indication: MIGRAINE
     Dosage: UNK, 2X/DAY
  3. CHANTIX [Suspect]
     Indication: SMOKING CESSATION THERAPY
     Dosage: 0.5 MG, UNK
     Route: 048
     Dates: start: 20111103, end: 20111101

REACTIONS (3)
  - MEMORY IMPAIRMENT [None]
  - EMOTIONAL DISORDER [None]
  - AGGRESSION [None]
